FAERS Safety Report 4407764-1 (Version None)
Quarter: 2004Q3

REPORT INFORMATION
  Report Type: 
  Country: None (occurrence: None)
  Receive Date: 20040721
  Receipt Date: 20040713
  Transmission Date: 20050211
  Serious: Yes (Hospitalization)
  Sender: FDA-Public Use
  Company Number: MK200407-0072-1

PATIENT
  Age: 55 Year
  Sex: Female

DRUGS (1)
  1. HEXABRIX [Suspect]
     Dosage: ONCE, IV
     Route: 042
     Dates: start: 20040605, end: 20040605

REACTIONS (4)
  - NAUSEA [None]
  - NYSTAGMUS [None]
  - VERTIGO [None]
  - VOMITING [None]
